FAERS Safety Report 4427366-0 (Version None)
Quarter: 2004Q3

REPORT INFORMATION
  Report Type: 
  Country: None (occurrence: None)
  Receive Date: 20040813
  Receipt Date: 20040729
  Transmission Date: 20050211
  Serious: Yes (Hospitalization)
  Sender: FDA-Public Use
  Company Number: FLUV00304002444

PATIENT
  Age: 73 Year
  Sex: Female

DRUGS (11)
  1. LUVOX [Suspect]
     Indication: DEPRESSION
     Dosage: 50 MG DAILY PO
     Route: 048
     Dates: start: 20030412, end: 20030419
  2. RILUTEK [Concomitant]
  3. METHYCOBAL (MECOBALAMIN) [Concomitant]
  4. PRORENAL (LIMAPROST) [Concomitant]
  5. PEON (ZALTOPROFEN) [Concomitant]
  6. ZOLPIDEM TARTRATE [Concomitant]
  7. PURSENNID (SENNA LEAF) [Concomitant]
  8. TENORMIN [Concomitant]
  9. QUINAPRIL HCL [Concomitant]
  10. DEPAS (ETIZOLAM) [Concomitant]
  11. PRAVASTATIN [Concomitant]

REACTIONS (8)
  - ALANINE AMINOTRANSFERASE ABNORMAL [None]
  - ASPARTATE AMINOTRANSFERASE ABNORMAL [None]
  - DEPRESSED LEVEL OF CONSCIOUSNESS [None]
  - GAMMA-GLUTAMYLTRANSFERASE ABNORMAL [None]
  - INAPPROPRIATE ANTIDIURETIC HORMONE SECRETION [None]
  - LABORATORY TEST ABNORMAL [None]
  - LIVER DISORDER [None]
  - RESPIRATORY FAILURE [None]
